FAERS Safety Report 19862386 (Version 1)
Quarter: 2021Q3

REPORT INFORMATION
  Report Type: Spontaneous
  Country: MY (occurrence: MY)
  Receive Date: 20210921
  Receipt Date: 20210921
  Transmission Date: 20211014
  Serious: Yes (Disabling, Other)
  Sender: FDA-Public Use
  Company Number: MY-BRISTOL-MYERS SQUIBB COMPANY-BMS-2021-091399

PATIENT
  Age: 79 Year
  Sex: Male

DRUGS (4)
  1. ROPIVACAINE. [Concomitant]
     Active Substance: ROPIVACAINE HYDROCHLORIDE
     Indication: SPINAL STENOSIS
     Dosage: 3.75 MILLIGRAM
     Route: 065
  2. ROPIVACAINE. [Concomitant]
     Active Substance: ROPIVACAINE HYDROCHLORIDE
     Indication: SCOLIOSIS
  3. TRIAMCINOLONE ACETONIDE. [Suspect]
     Active Substance: TRIAMCINOLONE ACETONIDE
     Indication: SPINAL STENOSIS
     Dosage: 10 MILLIGRAM
     Route: 065
  4. TRIAMCINOLONE ACETONIDE. [Suspect]
     Active Substance: TRIAMCINOLONE ACETONIDE
     Indication: SCOLIOSIS

REACTIONS (2)
  - Nervous system disorder [Unknown]
  - Intentional product use issue [Unknown]
